FAERS Safety Report 7866016-8 (Version None)
Quarter: 2011Q4

REPORT INFORMATION
  Report Type: 
  Country: None (occurrence: None)
  Receive Date: 20111028
  Receipt Date: 20110407
  Transmission Date: 20120403
  Serious: No
  Sender: FDA-Public Use
  Company Number: US-GLAXOSMITHKLINE-A0921836A

PATIENT
  Age: 66 Year
  Sex: Female
  Weight: 150 kg

DRUGS (9)
  1. PATANASE [Concomitant]
     Route: 045
  2. ZANTAC [Concomitant]
     Dosage: 150MG TWICE PER DAY
     Route: 048
  3. ADVAIR DISKUS 100/50 [Suspect]
     Indication: PRODUCT USED FOR UNKNOWN INDICATION
     Dosage: 1PUFF TWICE PER DAY
     Route: 055
     Dates: start: 20101005, end: 20101101
  4. ASPIRIN [Concomitant]
     Route: 048
  5. SINGULAIR [Concomitant]
     Route: 048
  6. CRESTOR [Concomitant]
     Route: 048
  7. KLONOPIN [Concomitant]
     Route: 048
  8. BENADRYL [Concomitant]
     Dosage: 25MG FOUR TIMES PER DAY
     Route: 048
  9. PROAIR HFA [Concomitant]

REACTIONS (1)
  - DYSPNOEA [None]
